FAERS Safety Report 16864920 (Version 2)
Quarter: 2019Q3

REPORT INFORMATION
  Report Type: Spontaneous
  Country: US (occurrence: US)
  Receive Date: 20190929
  Receipt Date: 20190930
  Transmission Date: 20191005
  Serious: Yes (Hospitalization)
  Sender: FDA-Public Use
  Company Number: US-009507513-1909USA013825

PATIENT
  Age: 77 Year
  Sex: Female

DRUGS (2)
  1. JANUVIA [Suspect]
     Active Substance: SITAGLIPTIN PHOSPHATE
     Indication: DIABETES MELLITUS
     Dosage: 100 MILLIGRAMS/DAILY
     Route: 048
     Dates: start: 2018, end: 201906
  2. JANUVIA [Suspect]
     Active Substance: SITAGLIPTIN PHOSPHATE
     Dosage: 100 MILLIGRAMS/DAILY, NDC: 0006-0277-31
     Route: 048
     Dates: start: 201906

REACTIONS (2)
  - Product packaging quantity issue [Unknown]
  - Back disorder [Recovering/Resolving]

NARRATIVE: CASE EVENT DATE: 201906
